FAERS Safety Report 24213289 (Version 1)
Quarter: 2024Q3

REPORT INFORMATION
  Report Type: Spontaneous
  Country: US (occurrence: None)
  Receive Date: 20240814
  Receipt Date: 20240814
  Transmission Date: 20241017
  Serious: Yes (Other)
  Sender: Public
  Company Number: None

PATIENT
  Age: 18 Year
  Sex: Male
  Weight: 74.7 kg

DRUGS (2)
  1. ZIPRASIDONE [Suspect]
     Active Substance: ZIPRASIDONE
     Indication: Aggression
     Dosage: FREQUENCY : DAILY;?
     Route: 048
     Dates: start: 20230410, end: 20230424
  2. Citalopram 20mg daily [Concomitant]
     Dates: start: 20090801

REACTIONS (2)
  - Eye movement disorder [None]
  - Tic [None]

NARRATIVE: CASE EVENT DATE: 20230410
